FAERS Safety Report 7850245-3 (Version None)
Quarter: 2011Q4

REPORT INFORMATION
  Report Type: 
  Country: None (occurrence: None)
  Receive Date: 20111024
  Receipt Date: 20111005
  Transmission Date: 20120403
  Serious: Yes (Hospitalization)
  Sender: FDA-Public Use
  Company Number: DSJ-2011-20727

PATIENT
  Age: 72 Year
  Sex: Female
  Weight: 48.8 kg

DRUGS (6)
  1. OLMESARTAN MEDOXOMIL [Suspect]
     Indication: HYPERTENSION
     Dosage: 10 MG, PER ORAL
     Route: 048
     Dates: start: 20110526
  2. NEW CALCICHEW D3 (COLECALCIFEROL, CALCIUM CARBONATE) (TABLET) (COLECAL [Concomitant]
  3. DEPAS (ETIZOLAM) (TABLET) (ETIZOLAM) [Concomitant]
  4. METHOTREXATE [Suspect]
     Indication: RHEUMATOID ARTHRITIS
     Dosage: 6MG/WEEK, PER ORAL
     Route: 048
     Dates: start: 20110621
  5. BLINDED DENOSUMAB (INJECTION) [Suspect]
     Indication: RHEUMATOID ARTHRITIS
     Dosage: DENOSUMAB 60MG (Q2M OR Q3M OR Q6M) OR PLACEBO, SUBCUTANEOUS
     Route: 058
     Dates: start: 20110222
  6. AMLODIPINE [Suspect]
     Indication: HYPERTENSION
     Dosage: 5 MG, PER ORAL
     Route: 048
     Dates: start: 20110526

REACTIONS (1)
  - COLONIC POLYP [None]
